FAERS Safety Report 15029566 (Version 1)
Quarter: 2018Q2

REPORT INFORMATION
  Report Type: Report from Study
  Country: IL (occurrence: IL)
  Receive Date: 20180619
  Receipt Date: 20180619
  Transmission Date: 20180711
  Serious: Yes (Hospitalization)
  Sender: FDA-Public Use
  Company Number: IL-SA-2018SA019406

PATIENT
  Age: 73 Year
  Sex: Female
  Weight: 101 kg

DRUGS (46)
  1. INSULIN GLARGINE/LIXISENATIDE [Suspect]
     Active Substance: INSULIN GLARGINE\LIXISENATIDE
     Dosage: 50 DF, QD
     Route: 058
     Dates: start: 20180122, end: 20180301
  2. INSULIN GLARGINE/LIXISENATIDE [Suspect]
     Active Substance: INSULIN GLARGINE\LIXISENATIDE
     Dosage: 54 DF, QD
     Route: 058
     Dates: start: 20170506
  3. FERROCAL [ASCORBIC ACID;CALCIUM CARBONATE;COLECALCIFEROL;FOLIC ACID;IR [Concomitant]
     Dosage: 500 MG
     Dates: start: 20180115
  4. INSULIN GLARGINE/LIXISENATIDE [Suspect]
     Active Substance: INSULIN GLARGINE\LIXISENATIDE
     Dosage: 22 DF,QD
     Route: 058
     Dates: start: 20170731, end: 20170731
  5. INSULIN GLARGINE/LIXISENATIDE [Suspect]
     Active Substance: INSULIN GLARGINE\LIXISENATIDE
     Dosage: 26 DF,QD
     Route: 058
     Dates: start: 20170804, end: 20170806
  6. INSULIN GLARGINE/LIXISENATIDE [Suspect]
     Active Substance: INSULIN GLARGINE\LIXISENATIDE
     Dosage: 34 DF,QD
     Route: 058
     Dates: start: 20170821, end: 20170823
  7. INSULIN GLARGINE/LIXISENATIDE [Suspect]
     Active Substance: INSULIN GLARGINE\LIXISENATIDE
     Dosage: 48 DF,QD
     Route: 058
     Dates: start: 20171101, end: 20171119
  8. METFORMIN HYDROCHLORIDE. [Suspect]
     Active Substance: METFORMIN HYDROCHLORIDE
     Indication: TYPE 2 DIABETES MELLITUS
     Dosage: 2550 MG,QD
     Route: 048
     Dates: start: 20150724, end: 20171228
  9. LIPANOR [Concomitant]
     Active Substance: CIPROFIBRATE
     Indication: HYPERLIPIDAEMIA
     Dosage: UNK UNK,UNK
     Route: 048
     Dates: start: 20170602
  10. INSULIN GLARGINE/LIXISENATIDE [Suspect]
     Active Substance: INSULIN GLARGINE\LIXISENATIDE
     Dosage: 42 DF,QD
     Route: 058
     Dates: start: 20170912, end: 20170917
  11. INSULIN GLARGINE/LIXISENATIDE [Suspect]
     Active Substance: INSULIN GLARGINE\LIXISENATIDE
     Dosage: 52 DF, QD
     Route: 058
     Dates: start: 20180302, end: 20180426
  12. METFORMIN HYDROCHLORIDE. [Suspect]
     Active Substance: METFORMIN HYDROCHLORIDE
     Dosage: 850 MG, BID
     Route: 048
     Dates: start: 20171229, end: 20180205
  13. AMIODARONE HYDROCHLORIDE. [Concomitant]
     Active Substance: AMIODARONE HYDROCHLORIDE
     Dosage: UNK UNK,UNK
     Route: 048
     Dates: start: 20170727
  14. CYMBALTA [Concomitant]
     Active Substance: DULOXETINE HYDROCHLORIDE
     Dosage: UNK UNK,UNK
     Route: 048
     Dates: start: 20160108
  15. ROWACHOL [Concomitant]
     Active Substance: HERBALS
     Indication: CHOLELITHIASIS
     Dosage: UNK UNK,UNK
     Route: 048
     Dates: start: 2014
  16. CEPHALEXIN AMEL [Concomitant]
     Dosage: 500 MG
     Route: 062
     Dates: start: 20180224, end: 20180304
  17. INSULIN GLARGINE/LIXISENATIDE [Suspect]
     Active Substance: INSULIN GLARGINE\LIXISENATIDE
     Indication: TYPE 2 DIABETES MELLITUS
     Dosage: 10 DF,QD
     Route: 058
     Dates: start: 20170713, end: 20170718
  18. INSULIN GLARGINE/LIXISENATIDE [Suspect]
     Active Substance: INSULIN GLARGINE\LIXISENATIDE
     Dosage: 12 DF,QD
     Route: 058
     Dates: start: 20170719, end: 20170720
  19. INSULIN GLARGINE/LIXISENATIDE [Suspect]
     Active Substance: INSULIN GLARGINE\LIXISENATIDE
     Dosage: 32 DF,QD
     Route: 058
     Dates: start: 20170814, end: 20170820
  20. INSULIN GLARGINE/LIXISENATIDE [Suspect]
     Active Substance: INSULIN GLARGINE\LIXISENATIDE
     Dosage: 36 DF,QD
     Route: 058
     Dates: start: 20170824, end: 20170828
  21. ALLORIL [Concomitant]
     Indication: HYPERURICAEMIA
     Dosage: UNK UNK,UNK
     Route: 048
     Dates: start: 20160315
  22. LERCAPRESS [Concomitant]
     Active Substance: ENALAPRIL MALEATE\LERCANIDIPINE HYDROCHLORIDE
     Indication: HYPERTENSION
     Dosage: UNK UNK,UNK
     Route: 048
     Dates: start: 20140912
  23. INSULIN GLARGINE/LIXISENATIDE [Suspect]
     Active Substance: INSULIN GLARGINE\LIXISENATIDE
     Dosage: 16 DF,QD
     Route: 058
     Dates: start: 20170725, end: 20170725
  24. INSULIN GLARGINE/LIXISENATIDE [Suspect]
     Active Substance: INSULIN GLARGINE\LIXISENATIDE
     Dosage: 28 DF,QD
     Route: 058
     Dates: start: 20170807, end: 20170810
  25. INSULIN GLARGINE/LIXISENATIDE [Suspect]
     Active Substance: INSULIN GLARGINE\LIXISENATIDE
     Dosage: 40 DF,QD
     Route: 058
     Dates: start: 20170903, end: 20170911
  26. INSULIN GLARGINE/LIXISENATIDE [Suspect]
     Active Substance: INSULIN GLARGINE\LIXISENATIDE
     Dosage: 48 DF,QD
     Route: 058
     Dates: start: 20171002, end: 20171019
  27. INSULIN GLARGINE/LIXISENATIDE [Suspect]
     Active Substance: INSULIN GLARGINE\LIXISENATIDE
     Dosage: 48 DF, QD
     Route: 058
     Dates: start: 20180110, end: 20180121
  28. CANDOR [Concomitant]
     Indication: HYPERTENSION
     Dosage: UNK UNK,UNK
     Route: 048
     Dates: start: 20170117
  29. SIRAN [Concomitant]
     Dosage: UNK UNK,UNK
     Route: 048
     Dates: start: 20171217
  30. FERRIPEL [Concomitant]
     Dosage: 50 MG
     Route: 048
     Dates: start: 20180115, end: 20180125
  31. INSULIN GLARGINE/LIXISENATIDE [Suspect]
     Active Substance: INSULIN GLARGINE\LIXISENATIDE
     Dosage: 40 DF,QD
     Route: 058
     Dates: start: 20171116, end: 20171116
  32. INSULIN GLARGINE/LIXISENATIDE [Suspect]
     Active Substance: INSULIN GLARGINE\LIXISENATIDE
     Dosage: 16 DF,QD
     Route: 058
     Dates: start: 20170721, end: 20170723
  33. INSULIN GLARGINE/LIXISENATIDE [Suspect]
     Active Substance: INSULIN GLARGINE\LIXISENATIDE
     Dosage: 30 DF,QD
     Route: 058
     Dates: start: 20170811, end: 20170813
  34. INSULIN GLARGINE/LIXISENATIDE [Suspect]
     Active Substance: INSULIN GLARGINE\LIXISENATIDE
     Dosage: 38 DF,QD
     Route: 058
     Dates: start: 20170831, end: 20170902
  35. INSULIN GLARGINE/LIXISENATIDE [Suspect]
     Active Substance: INSULIN GLARGINE\LIXISENATIDE
     Dosage: 46 DF,QD
     Route: 058
     Dates: start: 20170922, end: 20171001
  36. METFORMIN HYDROCHLORIDE. [Suspect]
     Active Substance: METFORMIN HYDROCHLORIDE
     Dosage: 850 MG,QD
     Route: 048
     Dates: start: 20171229, end: 20171231
  37. BEZALIP [Concomitant]
     Active Substance: BEZAFIBRATE
     Dosage: UNK UNK,UNK
     Route: 048
     Dates: start: 20170727
  38. INSULIN GLARGINE/LIXISENATIDE [Suspect]
     Active Substance: INSULIN GLARGINE\LIXISENATIDE
     Dosage: 20 DF,QD
     Route: 058
     Dates: start: 20170724, end: 20170724
  39. INSULIN GLARGINE/LIXISENATIDE [Suspect]
     Active Substance: INSULIN GLARGINE\LIXISENATIDE
     Dosage: 20 DF,QD
     Route: 058
     Dates: start: 20170727, end: 20170730
  40. INSULIN GLARGINE/LIXISENATIDE [Suspect]
     Active Substance: INSULIN GLARGINE\LIXISENATIDE
     Dosage: 24 DF,QD
     Route: 058
     Dates: start: 20170801, end: 20170803
  41. INSULIN GLARGINE/LIXISENATIDE [Suspect]
     Active Substance: INSULIN GLARGINE\LIXISENATIDE
     Dosage: 44 DF,QD
     Route: 058
     Dates: start: 20170918, end: 20170921
  42. INSULIN GLARGINE/LIXISENATIDE [Suspect]
     Active Substance: INSULIN GLARGINE\LIXISENATIDE
     Dosage: 54 DF, QD
     Route: 058
     Dates: start: 20170427, end: 20170505
  43. VIT D DROPS [Concomitant]
     Indication: PROPHYLAXIS
     Dosage: UNK UNK,UNK
     Route: 048
     Dates: start: 20091223
  44. CARDILOC [Concomitant]
     Active Substance: BISOPROLOL FUMARATE
     Indication: HYPERTENSION
     Dosage: UNK UNK,UNK
     Route: 048
     Dates: start: 20111228
  45. REPATHA [Concomitant]
     Active Substance: EVOLOCUMAB
     Indication: HYPERLIPIDAEMIA
     Dosage: UNK UNK,UNK
     Route: 058
     Dates: start: 20170815
  46. ELIQUIS [Concomitant]
     Active Substance: APIXABAN
     Dosage: UNK UNK,UNK
     Route: 048
     Dates: start: 20171118

REACTIONS (1)
  - Cardiac failure [Not Recovered/Not Resolved]

NARRATIVE: CASE EVENT DATE: 20180122
